FAERS Safety Report 24201401 (Version 1)
Quarter: 2024Q3

REPORT INFORMATION
  Report Type: Report from Study
  Country: US (occurrence: None)
  Receive Date: 20240812
  Receipt Date: 20240812
  Transmission Date: 20241017
  Serious: Yes (Hospitalization)
  Sender: ASTRAZENECA
  Company Number: 2022A368875

PATIENT
  Sex: Female

DRUGS (2)
  1. LYNPARZA [Suspect]
     Active Substance: OLAPARIB
     Indication: Breast cancer female
     Route: 048
     Dates: start: 20220429
  2. LYNPARZA [Suspect]
     Active Substance: OLAPARIB
     Indication: Non-Hodgkin^s lymphoma stage I
     Route: 048
     Dates: start: 20220429

REACTIONS (1)
  - Diabetes mellitus [Unknown]
